FAERS Safety Report 24715506 (Version 2)
Quarter: 2024Q4

REPORT INFORMATION
  Report Type: Spontaneous
  Country: JP (occurrence: JP)
  Receive Date: 20241210
  Receipt Date: 20241217
  Transmission Date: 20250115
  Serious: Yes (Hospitalization)
  Sender: UNITED THERAPEUTICS
  Company Number: JP-UNITED THERAPEUTICS-UNT-2024-039125

PATIENT
  Age: 13 Year
  Sex: Female

DRUGS (2)
  1. TYVASO [Suspect]
     Active Substance: TREPROSTINIL
     Indication: Product used for unknown indication
     Dosage: UNK
     Dates: start: 20241129, end: 20241202
  2. TYVASO [Suspect]
     Active Substance: TREPROSTINIL
     Dosage: 12 ?G, Q8H
     Dates: start: 202412

REACTIONS (5)
  - Gastroenteritis [Unknown]
  - Nausea [Unknown]
  - Cough [Unknown]
  - Epistaxis [Unknown]
  - Underdose [Unknown]

NARRATIVE: CASE EVENT DATE: 20240101
